FAERS Safety Report 20996494 (Version 8)
Quarter: 2022Q4

REPORT INFORMATION
  Report Type: Spontaneous
  Country: ES (occurrence: ES)
  Receive Date: 20220623
  Receipt Date: 20221125
  Transmission Date: 20230113
  Serious: Yes (Other)
  Sender: FDA-Public Use
  Company Number: ES-JNJFOC-20220633275

PATIENT
  Age: 47 Year
  Sex: Female
  Weight: 54 kg

DRUGS (3)
  1. PALIPERIDONE PALMITATE [Suspect]
     Active Substance: PALIPERIDONE PALMITATE
     Indication: Psychotic disorder
     Route: 030
  2. PALIPERIDONE PALMITATE [Suspect]
     Active Substance: PALIPERIDONE PALMITATE
  3. PALIPERIDONE PALMITATE [Suspect]
     Active Substance: PALIPERIDONE PALMITATE

REACTIONS (8)
  - Psychotic disorder [Not Recovered/Not Resolved]
  - Suicidal ideation [Unknown]
  - Nightmare [Unknown]
  - Disturbance in attention [Unknown]
  - Gait disturbance [Unknown]
  - Akathisia [Recovered/Resolved]
  - Treatment noncompliance [Unknown]
  - Anhedonia [Unknown]
